FAERS Safety Report 21034067 (Version 4)
Quarter: 2023Q1

REPORT INFORMATION
  Report Type: Report from Study
  Country: US (occurrence: US)
  Receive Date: 20220701
  Receipt Date: 20230228
  Transmission Date: 20230417
  Serious: No
  Sender: FDA-Public Use
  Company Number: US-NOVARTISTESTPH-NVSC2022US150018

PATIENT
  Age: 49 Year
  Sex: Female

DRUGS (1)
  1. COSENTYX [Suspect]
     Active Substance: SECUKINUMAB
     Indication: Psoriatic arthropathy
     Dosage: UNK
     Route: 065
     Dates: start: 20220219

REACTIONS (6)
  - COVID-19 [Unknown]
  - Nasopharyngitis [Unknown]
  - Bronchitis [Unknown]
  - Cough [Unknown]
  - Hypertension [Unknown]
  - Ear infection [Unknown]

NARRATIVE: CASE EVENT DATE: 20230109
